FAERS Safety Report 19087836 (Version 1)
Quarter: 2021Q2

REPORT INFORMATION
  Report Type: Spontaneous
  Country: US (occurrence: US)
  Receive Date: 20210402
  Receipt Date: 20210402
  Transmission Date: 20210717
  Serious: No
  Sender: FDA-Public Use
  Company Number: None

PATIENT
  Age: 66 Year
  Sex: Male
  Weight: 75.5 kg

DRUGS (1)
  1. TRUXIMA [Suspect]
     Active Substance: RITUXIMAB-ABBS
     Indication: IMMUNE THROMBOCYTOPENIA
     Route: 041
     Dates: start: 20210401, end: 20210401

REACTIONS (1)
  - Back pain [None]

NARRATIVE: CASE EVENT DATE: 20210401
